FAERS Safety Report 5770663-7 (Version None)
Quarter: 2008Q2

REPORT INFORMATION
  Report Type: 
  Country: None (occurrence: None)
  Receive Date: 20080613
  Receipt Date: 20080506
  Transmission Date: 20081010
  Serious: No
  Sender: FDA-Public Use
  Company Number: US-ABBOTT-08P-163-0451163-00

PATIENT
  Sex: Male
  Weight: 72.64 kg

DRUGS (5)
  1. HUMIRA [Suspect]
     Indication: PSORIASIS
     Route: 058
     Dates: start: 20080301, end: 20080301
  2. HUMIRA [Suspect]
     Indication: PSORIATIC ARTHROPATHY
     Route: 058
     Dates: end: 20080501
  3. CELECOXIB [Concomitant]
     Indication: PAIN
     Route: 048
     Dates: end: 20080301
  4. BUDESONIDE [Concomitant]
     Indication: SEASONAL ALLERGY
     Route: 055
  5. METOPROLOL SUCCINATE [Concomitant]
     Indication: HYPERTENSION
     Route: 048
     Dates: start: 20080420

REACTIONS (6)
  - ABDOMINAL DISTENSION [None]
  - ABDOMINAL PAIN [None]
  - HEADACHE [None]
  - HYPERTENSION [None]
  - MALAISE [None]
  - NAUSEA [None]
